FAERS Safety Report 18230488 (Version 2)
Quarter: 2020Q3

REPORT INFORMATION
  Report Type: Spontaneous
  Country: JP (occurrence: JP)
  Receive Date: 20200903
  Receipt Date: 20200910
  Transmission Date: 20201103
  Serious: Yes (Other)
  Sender: FDA-Public Use
  Company Number: JP-SA-2020SA234528

PATIENT

DRUGS (7)
  1. IRBETAN [Concomitant]
     Active Substance: IRBESARTAN
     Indication: HYPERTENSION
     Route: 065
  2. PREDONINE [Concomitant]
     Active Substance: PREDNISOLONE
     Indication: EOSINOPHILIC OTITIS MEDIA
     Dosage: 10 MG/DAY
     Route: 065
  3. PREDONINE [Concomitant]
     Active Substance: PREDNISOLONE
     Indication: COUGH
     Dosage: 20 MG/DAY
     Route: 065
     Dates: start: 20200831
  4. RELVAR [Concomitant]
     Active Substance: FLUTICASONE FUROATE\VILANTEROL TRIFENATATE
     Indication: ASTHMA
     Dosage: DAILY DOSAGE: 200
     Route: 065
  5. PREDONINE [Concomitant]
     Active Substance: PREDNISOLONE
     Indication: EOSINOPHIL PERCENTAGE INCREASED
  6. DUPIXENT [Suspect]
     Active Substance: DUPILUMAB
     Indication: CHRONIC RHINOSINUSITIS WITH NASAL POLYPS
     Dosage: UNK
     Route: 058
     Dates: start: 20200803, end: 20200817
  7. TAKECAB [Concomitant]
     Active Substance: VONOPRAZAN FUMARATE
     Indication: PRODUCT USED FOR UNKNOWN INDICATION
     Route: 065

REACTIONS (11)
  - Insomnia [Unknown]
  - Injection site bruising [Unknown]
  - Transient ischaemic attack [Recovered/Resolved]
  - Cough [Recovering/Resolving]
  - C-reactive protein increased [Unknown]
  - Injection site bruising [Unknown]
  - Injection site haemorrhage [Unknown]
  - Loss of consciousness [Recovered/Resolved]
  - Infection [Unknown]
  - Productive cough [Recovered/Resolved]
  - Eosinophil percentage increased [Recovered/Resolved]

NARRATIVE: CASE EVENT DATE: 202008
